FAERS Safety Report 10003686 (Version 1)
Quarter: 2014Q1

REPORT INFORMATION
  Report Type: Spontaneous
  Country: US (occurrence: US)
  Receive Date: 20140312
  Receipt Date: 20140312
  Transmission Date: 20141002
  Serious: Yes (Disabling)
  Sender: FDA-Public Use
  Company Number: US-GE HEALTHCARE MEDICAL DIAGNOSTICS-OSCN-PR-0902S-0059

PATIENT
  Age: 50 Year
  Sex: Male
  Weight: 77.27 kg

DRUGS (32)
  1. OMNISCAN [Suspect]
     Indication: SCAN BRAIN
     Route: 065
     Dates: start: 20041220, end: 20041220
  2. OMNISCAN [Suspect]
     Route: 065
     Dates: start: 20060809, end: 20060809
  3. MULTIHANCE [Suspect]
     Indication: METASTASES TO SPINE
     Route: 065
     Dates: start: 20070731, end: 20070731
  4. MAGNEVIST [Suspect]
     Indication: METASTASES TO CENTRAL NERVOUS SYSTEM
     Route: 042
     Dates: start: 20041230, end: 20041230
  5. MAGNEVIST [Suspect]
     Indication: METASTASES TO SPINE
     Route: 042
     Dates: start: 20041231, end: 20041231
  6. MAGNEVIST [Suspect]
     Route: 042
     Dates: start: 20050207, end: 20050207
  7. MAGNEVIST [Suspect]
     Route: 042
     Dates: start: 20050310, end: 20050310
  8. MAGNEVIST [Suspect]
     Route: 042
     Dates: start: 20050311, end: 20050311
  9. MAGNEVIST [Suspect]
     Route: 042
     Dates: start: 20050517, end: 20050517
  10. MAGNEVIST [Suspect]
     Route: 042
     Dates: start: 20050624, end: 20050624
  11. MAGNEVIST [Suspect]
     Route: 042
     Dates: start: 20050627, end: 20050627
  12. MAGNEVIST [Suspect]
     Route: 042
     Dates: start: 20050823, end: 20050823
  13. MAGNEVIST [Suspect]
     Route: 042
     Dates: start: 20050928, end: 20050928
  14. MAGNEVIST [Suspect]
     Route: 042
     Dates: start: 20051115, end: 20051115
  15. MAGNEVIST [Suspect]
     Route: 042
     Dates: start: 20051116, end: 20051116
  16. MAGNEVIST [Suspect]
     Route: 042
     Dates: start: 20060208, end: 20060208
  17. MAGNEVIST [Suspect]
     Route: 042
     Dates: start: 20060209, end: 20060209
  18. MAGNEVIST [Suspect]
     Route: 042
     Dates: start: 20060504, end: 20060504
  19. MAGNEVIST [Suspect]
     Route: 042
     Dates: start: 20060505, end: 20060505
  20. MAGNEVIST [Suspect]
     Route: 042
     Dates: start: 20060808, end: 20060808
  21. MAGNEVIST [Suspect]
     Route: 042
     Dates: start: 20061114, end: 20061114
  22. MAGNEVIST [Suspect]
     Route: 042
     Dates: start: 20061115, end: 20061115
  23. MAGNEVIST [Suspect]
     Route: 042
     Dates: start: 20070320, end: 20070320
  24. MAGNEVIST [Suspect]
     Route: 042
     Dates: start: 20070321, end: 20070321
  25. MAGNEVIST [Suspect]
     Route: 042
     Dates: start: 20070508, end: 20070508
  26. MAGNEVIST [Suspect]
     Route: 042
     Dates: start: 20070509, end: 20070509
  27. MAGNEVIST [Suspect]
     Route: 042
     Dates: start: 20070618, end: 20070618
  28. MAGNEVIST [Suspect]
     Route: 042
     Dates: start: 20070801, end: 20070801
  29. MAGNEVIST [Suspect]
     Route: 042
     Dates: start: 20070904, end: 20070904
  30. MAGNEVIST [Suspect]
     Route: 042
     Dates: start: 20071114, end: 20071114
  31. MAGNEVIST [Suspect]
     Route: 042
     Dates: start: 20080219, end: 20080219
  32. MAGNEVIST [Suspect]
     Route: 042
     Dates: start: 20080220, end: 20080220

REACTIONS (1)
  - Nephrogenic systemic fibrosis [Not Recovered/Not Resolved]
